FAERS Safety Report 12471393 (Version 1)
Quarter: 2016Q2

REPORT INFORMATION
  Report Type: Spontaneous
  Country: US (occurrence: None)
  Receive Date: 20160615
  Receipt Date: 20160615
  Transmission Date: 20160815
  Serious: No
  Sender: FDA-Public Use
  Company Number: None

PATIENT
  Age: 60 Year
  Sex: Male

DRUGS (1)
  1. TACROLIMUS 1MG CAPSULE DR. REDDYS [Suspect]
     Active Substance: TACROLIMUS

REACTIONS (1)
  - Hypertension [None]

NARRATIVE: CASE EVENT DATE: 20160607
